FAERS Safety Report 7729565-9 (Version None)
Quarter: 2011Q3

REPORT INFORMATION
  Report Type: 
  Country: None (occurrence: None)
  Receive Date: 20110901
  Receipt Date: 20110901
  Transmission Date: 20111222
  Serious: Yes (Hospitalization)
  Sender: FDA-Public Use
  Company Number: None

PATIENT
  Sex: Male

DRUGS (1)
  1. SIMPONI [Suspect]
     Dosage: 50MG MONTHLY SQ
     Route: 058
     Dates: start: 20110324, end: 20110724

REACTIONS (3)
  - SWOLLEN TONGUE [None]
  - DIZZINESS [None]
  - APHASIA [None]
